FAERS Safety Report 4491591-3 (Version None)
Quarter: 2004Q4

REPORT INFORMATION
  Report Type: 
  Country: None (occurrence: None)
  Receive Date: 20041101
  Receipt Date: 20041019
  Transmission Date: 20050328
  Serious: Yes (Hospitalization)
  Sender: FDA-Public Use
  Company Number: 2004084292

PATIENT
  Age: 19 Year
  Sex: Male

DRUGS (4)
  1. ZELDOX (CAPSULES) (ZIPRASIDONE) [Suspect]
     Indication: ILL-DEFINED DISORDER
     Dosage: 120 MG, ORAL
     Route: 048
     Dates: end: 20040101
  2. FLUOXETINE [Suspect]
     Indication: ILL-DEFINED DISORDER
     Dosage: 1 IN 1 D, ORAL
     Route: 048
     Dates: end: 20041001
  3. DIAZEPAM [Concomitant]
  4. FLURAZEPAM [Concomitant]

REACTIONS (4)
  - ABNORMAL BEHAVIOUR [None]
  - DISINHIBITION [None]
  - EXCESSIVE MASTURBATION [None]
  - SEXUAL DYSFUNCTION [None]
